FAERS Safety Report 6302966-1 (Version None)
Quarter: 2009Q3

REPORT INFORMATION
  Report Type: 
  Country: None (occurrence: None)
  Receive Date: 20090810
  Receipt Date: 20090803
  Transmission Date: 20100115
  Serious: Yes (Life-Threatening)
  Sender: FDA-Public Use
  Company Number: B0587837A

PATIENT
  Sex: Female
  Weight: 53 kg

DRUGS (3)
  1. COMBIVIR [Suspect]
     Indication: HIV INFECTION
     Route: 048
     Dates: start: 20090718, end: 20090721
  2. ATAZANAVIR [Suspect]
     Indication: HIV INFECTION
     Route: 048
     Dates: start: 20090718, end: 20090721
  3. RITONAVIR [Suspect]
     Indication: HIV INFECTION
     Route: 048
     Dates: start: 20090718, end: 20090721

REACTIONS (5)
  - ANGIOEDEMA [None]
  - EYE INFLAMMATION [None]
  - EYE PRURITUS [None]
  - RASH GENERALISED [None]
  - TOXIC SKIN ERUPTION [None]
